FAERS Safety Report 17986908 (Version 1)
Quarter: 2020Q3

REPORT INFORMATION
  Report Type: Spontaneous
  Country: US (occurrence: US)
  Receive Date: 20200707
  Receipt Date: 20200707
  Transmission Date: 20201103
  Serious: No
  Sender: FDA-Public Use
  Company Number: US-BION-008202

PATIENT
  Age: 68 Year
  Sex: Female

DRUGS (2)
  1. AMANTADINE HYDROCHLORIDE CAPSULE 100 MG [Suspect]
     Active Substance: AMANTADINE HYDROCHLORIDE
     Indication: PARKINSON^S DISEASE
     Dosage: TAKING FROM ALMOST 4 YEARS
  2. CARBIDOPA/LEVODOPA [Suspect]
     Active Substance: CARBIDOPA\LEVODOPA
     Indication: PRODUCT USED FOR UNKNOWN INDICATION

REACTIONS (4)
  - Balance disorder [Unknown]
  - Nausea [Unknown]
  - Dyspnoea [Unknown]
  - Fatigue [Unknown]
